FAERS Safety Report 7257131-0 (Version None)
Quarter: 2011Q1

REPORT INFORMATION
  Report Type: 
  Country: None (occurrence: None)
  Receive Date: 20110129
  Receipt Date: 20100729
  Transmission Date: 20110831
  Serious: No
  Sender: FDA-Public Use
  Company Number: US-ABBOTT-10P-163-0661244-00

PATIENT
  Sex: Female

DRUGS (1)
  1. HUMIRA [Suspect]
     Indication: JUVENILE ARTHRITIS
     Dates: start: 20090101

REACTIONS (5)
  - VULVOVAGINAL MYCOTIC INFECTION [None]
  - RASH [None]
  - DIZZINESS [None]
  - HYPOTENSION [None]
  - FUNGAL INFECTION [None]
